FAERS Safety Report 9096426 (Version 1)
Quarter: 2013Q1

REPORT INFORMATION
  Report Type: Spontaneous
  Country: GB (occurrence: None)
  Receive Date: 20130124
  Receipt Date: 20130124
  Transmission Date: 20140127
  Serious: Yes (Other)
  Sender: FDA-Public Use
  Company Number: 1558477

PATIENT
  Sex: Male

DRUGS (10)
  1. CALCIUM FOLINATE [Suspect]
  2. IRINOTECAN HYDROCHLORIDE [Suspect]
  3. OXALIPLATIN [Suspect]
     Route: 042
     Dates: start: 20070906, end: 20071129
  4. FLUOROURACIL [Suspect]
  5. DEXAMETHASONE [Concomitant]
  6. METOCLOPRAMIDE [Concomitant]
  7. OMEPRAZOLE [Concomitant]
  8. ZOFRAN [Concomitant]
  9. DIGOXIN [Concomitant]
  10. ONDANSETRON [Concomitant]

REACTIONS (8)
  - Candida infection [None]
  - Device related infection [None]
  - Hyperglycaemia [None]
  - Lethargy [None]
  - Dyspepsia [None]
  - Dry mouth [None]
  - Neuropathy peripheral [None]
  - Pain of skin [None]
